FAERS Safety Report 23427242 (Version 1)
Quarter: 2024Q1

REPORT INFORMATION
  Report Type: Spontaneous
  Country: US (occurrence: US)
  Receive Date: 20240122
  Receipt Date: 20240122
  Transmission Date: 20240410
  Serious: No
  Sender: FDA-Public Use
  Company Number: US-PERRIGO-23US008879

PATIENT
  Age: 3 Year
  Sex: Male
  Weight: 15.873 kg

DRUGS (2)
  1. IBUPROFEN [Suspect]
     Active Substance: IBUPROFEN
     Indication: Pyrexia
     Dosage: 100 MG, SINGLE
     Route: 048
     Dates: start: 202306, end: 202306
  2. IBUPROFEN [Suspect]
     Active Substance: IBUPROFEN
     Dosage: 100 MG, SINGLE
     Route: 048
     Dates: start: 20230804, end: 20230804

REACTIONS (1)
  - Expired product administered [Recovered/Resolved]

NARRATIVE: CASE EVENT DATE: 20230601
